FAERS Safety Report 26209707 (Version 1)
Quarter: 2025Q4

REPORT INFORMATION
  Report Type: Spontaneous
  Country: EU (occurrence: EU)
  Receive Date: 20251229
  Receipt Date: 20251229
  Transmission Date: 20260117
  Serious: Yes (Hospitalization, Other)
  Sender: PFIZER
  Company Number: None

PATIENT
  Age: 6 Year
  Sex: Male
  Weight: 18 kg

DRUGS (3)
  1. VINCRISTINE [Suspect]
     Active Substance: VINCRISTINE
     Indication: Acute lymphocytic leukaemia
     Dosage: 1.18 MG, (SINGLE DOSE 1.18MG (1.5MG/M2)
     Route: 042
     Dates: start: 20251009
  2. MITOXANTRONE [Suspect]
     Active Substance: MITOXANTRONE HYDROCHLORIDE
     Indication: Acute lymphocytic leukaemia
     Dosage: 7.9 MG; 7.9MG (10 MG/M2) (INJECTION INFUSION 10 ML)
     Route: 042
     Dates: start: 20251009
  3. PEGASPARGASE [Suspect]
     Active Substance: PEGASPARGASE
     Indication: Acute lymphocytic leukaemia
     Dosage: 790U (1.000U/M2) (750 A/ML INJECTABLE 5 ML 1 VIAL)
     Route: 042
     Dates: start: 20251009

REACTIONS (3)
  - Encephalopathy [Recovered/Resolved]
  - Partial seizures [Recovered/Resolved]
  - Hypertension [Recovered/Resolved]

NARRATIVE: CASE EVENT DATE: 20251013
